FAERS Safety Report 4738573-1 (Version None)
Quarter: 2005Q3

REPORT INFORMATION
  Report Type: 
  Country: None (occurrence: None)
  Receive Date: 20050809
  Receipt Date: 20050729
  Transmission Date: 20060218
  Serious: Yes (Other)
  Sender: FDA-Public Use
  Company Number: NL-BRISTOL-MYERS SQUIBB COMPANY-13056270

PATIENT
  Age: 75 Year

DRUGS (4)
  1. CISPLATIN [Suspect]
     Indication: ENDOMETRIAL CANCER
  2. PACLITAXEL [Suspect]
     Indication: ENDOMETRIAL CANCER
  3. EPIRUBICIN [Suspect]
     Indication: ENDOMETRIAL CANCER
  4. RADIOTHERAPY [Concomitant]
     Indication: ENDOMETRIAL CANCER

REACTIONS (1)
  - CARDIAC FAILURE CONGESTIVE [None]
